FAERS Safety Report 8849031 (Version 1)
Quarter: 2012Q4

REPORT INFORMATION
  Report Type: Spontaneous
  Country: US (occurrence: None)
  Receive Date: 20121016
  Receipt Date: 20121016
  Transmission Date: 20130627
  Serious: No
  Sender: FDA-Public Use
  Company Number: None

PATIENT
  Age: 68 Year
  Sex: Female

DRUGS (2)
  1. TIZANIDINE [Suspect]
     Indication: TENSION HEADACHE
     Dosage: 2 mg 1 tablet 1 week 1 at bedtime oral 
2  tab 1 week at bedtime oral
     Route: 048
     Dates: start: 20120731, end: 20120827
  2. TIZANIDINE [Suspect]
     Indication: TENSION HEADACHE

REACTIONS (2)
  - Drug ineffective [None]
  - Product quality issue [None]
